FAERS Safety Report 7860464-8 (Version None)
Quarter: 2011Q4

REPORT INFORMATION
  Report Type: 
  Country: None (occurrence: None)
  Receive Date: 20111026
  Receipt Date: 20111018
  Transmission Date: 20120403
  Serious: Yes (Death)
  Sender: FDA-Public Use
  Company Number: CIP-2011-00859

PATIENT

DRUGS (3)
  1. BEVACIZUMAB [Concomitant]
  2. IRINOTECAN HCL [Suspect]
     Indication: SMALL CELL LUNG CANCER EXTENSIVE STAGE
     Dosage: 65 MG/M2 (DAYS 1 AND 8 FOR 6 CYCLES)
  3. CISPLATIN [Concomitant]

REACTIONS (1)
  - PNEUMONITIS [None]
